FAERS Safety Report 10502839 (Version 2)
Quarter: 2014Q4

REPORT INFORMATION
  Report Type: Spontaneous
  Country: JP (occurrence: None)
  Receive Date: 20141003
  Receipt Date: 20141222
  Transmission Date: 20150528
  Serious: Yes (Life-Threatening, Hospitalization)
  Sender: FDA-Public Use
  Company Number: 2014MPI01017

PATIENT
  Age: 60 Year
  Sex: Female
  Weight: 78.5 kg

DRUGS (8)
  1. FUNGUARD (MICAFUNGIN SODIUM) [Concomitant]
  2. ADCETRIS [Suspect]
     Active Substance: BRENTUXIMAB VEDOTIN
     Indication: HODGKIN^S DISEASE
     Route: 041
     Dates: start: 20140417
  3. ANTIHISTAMINES [Concomitant]
     Active Substance: ANTIHISTAMINES NOS
  4. PREDNISOLONE (PREDNISOLONE ACETATE) [Concomitant]
     Active Substance: PREDNISOLONE ACETATE
  5. BAKTAR (SULFAMETHOXAZOLE , TRIMETHOPRIM) [Concomitant]
  6. ACETAMINOPHEN. [Concomitant]
     Active Substance: ACETAMINOPHEN
  7. CORTICOSTEROIDS [Concomitant]
     Active Substance: CORTICOSTEROID NOS
  8. ITRIZOLE (ITRACONAZOLE) [Concomitant]

REACTIONS (4)
  - Interstitial lung disease [None]
  - Peripheral sensory neuropathy [None]
  - Neutropenia [None]
  - Cholecystitis [None]

NARRATIVE: CASE EVENT DATE: 20140428
